FAERS Safety Report 7778935-1 (Version None)
Quarter: 2011Q3

REPORT INFORMATION
  Report Type: 
  Country: None (occurrence: None)
  Receive Date: 20110926
  Receipt Date: 20110906
  Transmission Date: 20111222
  Serious: Yes (Hospitalization, Disabling)
  Sender: FDA-Public Use
  Company Number: JP-AMGEN-JPNCT2010001682

PATIENT
  Age: 70 Year
  Sex: Male
  Weight: 62 kg

DRUGS (10)
  1. HIRUDOID [Concomitant]
     Route: 062
  2. PROTECADIN [Concomitant]
     Route: 048
  3. COUGHCODE [Concomitant]
     Route: 048
  4. GOSHAJINKIGAN [Concomitant]
     Route: 048
  5. ANTIHISTAMINES [Concomitant]
     Indication: PROPHYLAXIS
     Route: 065
  6. PANDEL [Concomitant]
     Route: 062
  7. CORTICOSTEROIDS [Concomitant]
     Indication: PROPHYLAXIS
     Route: 065
  8. LENDORMIN DAINIPPO [Concomitant]
     Route: 048
  9. PANITUMUMAB [Suspect]
     Indication: COLORECTAL CANCER
     Dosage: 60 MG/KG, Q2WK
     Route: 041
     Dates: start: 20100922, end: 20101006
  10. PYRIDOXAL [Concomitant]
     Route: 048

REACTIONS (2)
  - THORACIC VERTEBRAL FRACTURE [None]
  - MUSCULAR WEAKNESS [None]
